FAERS Safety Report 13030580 (Version 1)
Quarter: 2016Q4

REPORT INFORMATION
  Report Type: Spontaneous
  Country: US (occurrence: US)
  Receive Date: 20161214
  Receipt Date: 20161214
  Transmission Date: 20170207
  Serious: Yes (Life-Threatening, Disabling, Other)
  Sender: FDA-Public Use
  Company Number: None

PATIENT
  Age: 33 Year
  Sex: Male
  Weight: 71.73 kg

DRUGS (1)
  1. APIDRA SOLOSTAR [Suspect]
     Active Substance: INSULIN GLULISINE

REACTIONS (7)
  - Incorrect dose administered by device [None]
  - Glycosylated haemoglobin increased [None]
  - Device leakage [None]
  - Device issue [None]
  - Device failure [None]
  - Device difficult to use [None]
  - Needle issue [None]

NARRATIVE: CASE EVENT DATE: 20161201
